FAERS Safety Report 4786301-6 (Version None)
Quarter: 2005Q3

REPORT INFORMATION
  Report Type: 
  Country: None (occurrence: None)
  Receive Date: 20050927
  Receipt Date: 20050822
  Transmission Date: 20060218
  Serious: No
  Sender: FDA-Public Use
  Company Number: USA0508106070

PATIENT
  Age: 36 Year
  Sex: Male

DRUGS (1)
  1. STRATTERA [Suspect]
     Indication: ATTENTION DEFICIT/HYPERACTIVITY DISORDER
     Dosage: 18 MG DAY
     Dates: start: 20050601

REACTIONS (5)
  - DRY MOUTH [None]
  - HYPERHIDROSIS [None]
  - POLLAKIURIA [None]
  - VISION BLURRED [None]
  - WEIGHT DECREASED [None]
